FAERS Safety Report 9687041 (Version 2)
Quarter: 2013Q4

REPORT INFORMATION
  Report Type: Spontaneous
  Country: TR (occurrence: TR)
  Receive Date: 20131113
  Receipt Date: 20131113
  Transmission Date: 20140711
  Serious: Yes (Hospitalization)
  Sender: FDA-Public Use
  Company Number: TR-ABBVIE-13P-161-1054834-00

PATIENT
  Age: 18 Year
  Sex: Male
  Weight: 62 kg

DRUGS (4)
  1. HUMIRA [Suspect]
     Indication: CROHN^S DISEASE
     Route: 058
     Dates: start: 20120917, end: 20121115
  2. HUMIRA [Suspect]
     Dates: start: 20130225, end: 20130721
  3. HUMIRA [Suspect]
     Dates: start: 20130911
  4. IMURAN [Concomitant]
     Indication: CROHN^S DISEASE
     Route: 048
     Dates: start: 20120601

REACTIONS (1)
  - Ileus [Recovered/Resolved]
